FAERS Safety Report 22279751 (Version 3)
Quarter: 2023Q4

REPORT INFORMATION
  Report Type: Report from Study
  Country: US (occurrence: US)
  Receive Date: 20230503
  Receipt Date: 20231122
  Transmission Date: 20240110
  Serious: Yes (Other)
  Sender: FDA-Public Use
  Company Number: US-ARGENX-2023-ARGX-US000430

PATIENT

DRUGS (1)
  1. VYVGART [Suspect]
     Active Substance: EFGARTIGIMOD ALFA-FCAB
     Indication: Product used for unknown indication
     Dosage: UNK
     Route: 042
     Dates: start: 20230209

REACTIONS (9)
  - Thyroid cancer [Unknown]
  - Thyroid mass [Unknown]
  - Paranasal sinus discomfort [Unknown]
  - Eye irritation [Unknown]
  - Oropharyngeal pain [Recovered/Resolved]
  - Headache [Recovered/Resolved]
  - Fatigue [Unknown]
  - Therapeutic response decreased [Unknown]
  - Goitre [Unknown]

NARRATIVE: CASE EVENT DATE: 20230209
